FAERS Safety Report 5143121-0 (Version None)
Quarter: 2006Q4

REPORT INFORMATION
  Report Type: 
  Country: None (occurrence: None)
  Receive Date: 20061031
  Receipt Date: 20061031
  Transmission Date: 20070319
  Serious: Yes (Hospitalization)
  Sender: FDA-Public Use
  Company Number: None

PATIENT
  Sex: Female
  Weight: 51.574 kg

DRUGS (11)
  1. GEMCITABINE [Suspect]
     Indication: PANCREATIC CARCINOMA
     Dosage: 1000MG/M2    DAY 1 + 15   IV DRIP
     Route: 041
     Dates: start: 20060913, end: 20061027
  2. CISPLATIN [Suspect]
     Indication: PANCREATIC CARCINOMA
     Dosage: 20MG/M2    DAY 1 + 15   IV DRIP
     Route: 041
     Dates: start: 20060913, end: 20061027
  3. BEVACIZUMAB [Suspect]
     Indication: PANCREATIC CARCINOMA
     Dosage: 10MG/KG    DAY 1 + 15     IV DRIP
     Route: 041
     Dates: start: 20060913, end: 20061027
  4. PERCOCET [Concomitant]
  5. COMPAZINE [Concomitant]
  6. LORAZEPAM [Concomitant]
  7. KYTRIL [Concomitant]
  8. DECADRON [Concomitant]
  9. FENTANYL CITRATE [Concomitant]
  10. COLACE [Concomitant]
  11. SENNA [Concomitant]

REACTIONS (2)
  - NAUSEA [None]
  - VOMITING [None]
